FAERS Safety Report 8911352 (Version 2)
Quarter: 2013Q4

REPORT INFORMATION
  Report Type: Spontaneous
  Country: US (occurrence: US)
  Receive Date: 20121116
  Receipt Date: 20131217
  Transmission Date: 20140711
  Serious: No
  Sender: FDA-Public Use
  Company Number: US-GLAXOSMITHKLINE-A0998079A

PATIENT
  Age: 74 Year
  Sex: Female

DRUGS (4)
  1. VOTRIENT [Suspect]
     Indication: RENAL CANCER
     Dosage: 600MG PER DAY
     Route: 048
  2. ASPIRIN [Suspect]
     Indication: PRODUCT USED FOR UNKNOWN INDICATION
     Route: 065
  3. UNSPECIFIED TREATMENT [Suspect]
     Route: 065
  4. CRESTOR [Concomitant]

REACTIONS (9)
  - Ill-defined disorder [Unknown]
  - Dysphagia [Unknown]
  - Muscle spasms [Unknown]
  - Fatigue [Unknown]
  - Blood pressure increased [Recovering/Resolving]
  - Gait disturbance [Unknown]
  - Increased tendency to bruise [Unknown]
  - Blood calcium decreased [Unknown]
  - Back pain [Unknown]
